FAERS Safety Report 7687225-7 (Version None)
Quarter: 2011Q3

REPORT INFORMATION
  Report Type: 
  Country: None (occurrence: None)
  Receive Date: 20110816
  Receipt Date: 20110809
  Transmission Date: 20111222
  Serious: Yes (Hospitalization)
  Sender: FDA-Public Use
  Company Number: US-US-EMD SERONO, INC.-7044180

PATIENT
  Sex: Female
  Weight: 95 kg

DRUGS (8)
  1. BACLOFEN [Concomitant]
  2. REBIF [Suspect]
     Route: 058
     Dates: start: 20110209
  3. REBIF [Suspect]
     Indication: MULTIPLE SCLEROSIS
     Dates: end: 20090101
  4. LYRICA [Concomitant]
  5. REBIF [Suspect]
     Route: 058
  6. TYLENOL-500 [Concomitant]
     Indication: PREMEDICATION
  7. TOPAMAX [Concomitant]
  8. XANAX [Concomitant]

REACTIONS (9)
  - SEPSIS [None]
  - MULTIPLE SCLEROSIS [None]
  - FALL [None]
  - STRESS [None]
  - UPPER RESPIRATORY TRACT INFECTION [None]
  - URINARY TRACT INFECTION [None]
  - CONVULSION [None]
  - TREATMENT FAILURE [None]
  - FATIGUE [None]
